FAERS Safety Report 24162876 (Version 2)
Quarter: 2025Q2

REPORT INFORMATION
  Report Type: Report from Study
  Country: US (occurrence: US)
  Receive Date: 20240801
  Receipt Date: 20250424
  Transmission Date: 20250716
  Serious: Yes (Other)
  Sender: ABBVIE
  Company Number: US-ABBVIE-5856847

PATIENT
  Sex: Female

DRUGS (1)
  1. SKYRIZI [Suspect]
     Active Substance: RISANKIZUMAB-RZAA
     Indication: Psoriasis
     Route: 058
     Dates: start: 20230609

REACTIONS (6)
  - Skin cancer [Unknown]
  - Feeding disorder [Unknown]
  - Asthenia [Unknown]
  - Photophobia [Unknown]
  - Abdominal migraine [Unknown]
  - Cyclic vomiting syndrome [Unknown]
